FAERS Safety Report 14995205 (Version 1)
Quarter: 2018Q2

REPORT INFORMATION
  Report Type: Spontaneous
  Country: ME (occurrence: ME)
  Receive Date: 20180611
  Receipt Date: 20180611
  Transmission Date: 20180711
  Serious: Yes (Death)
  Sender: FDA-Public Use
  Company Number: ME-PFIZER INC-2018237270

PATIENT
  Age: 49 Year
  Sex: Male

DRUGS (1)
  1. AXITINIB [Suspect]
     Active Substance: AXITINIB
     Indication: METASTATIC RENAL CELL CARCINOMA
     Dosage: 5 MG, 2X/DAY
     Route: 048
     Dates: start: 20161102, end: 20170511

REACTIONS (4)
  - Death [Fatal]
  - Palmar-plantar erythrodysaesthesia syndrome [Unknown]
  - Pleural effusion [Unknown]
  - Neoplasm progression [Unknown]

NARRATIVE: CASE EVENT DATE: 20170111
